FAERS Safety Report 4278383-5 (Version None)
Quarter: 2004Q1

REPORT INFORMATION
  Report Type: 
  Country: None (occurrence: None)
  Receive Date: 20040122
  Receipt Date: 20040122
  Transmission Date: 20041129
  Serious: Yes (Life-Threatening, Disabling)
  Sender: FDA-Public Use
  Company Number: None

PATIENT
  Age: 40 Year
  Sex: Male
  Weight: 86.1834 kg

DRUGS (4)
  1. PAXIL [Suspect]
     Indication: ANXIETY
     Dosage: 37.5 MG DAILY ORAL
     Route: 048
     Dates: start: 19991101, end: 20040111
  2. PAXIL [Suspect]
     Indication: DEPRESSION
     Dosage: 37.5 MG DAILY ORAL
     Route: 048
     Dates: start: 19991101, end: 20040111
  3. LAMICTAL [Concomitant]
  4. KLONOPIN [Concomitant]

REACTIONS (4)
  - DISORIENTATION [None]
  - DRUG WITHDRAWAL SYNDROME [None]
  - PHOTOPSIA [None]
  - PYREXIA [None]
